FAERS Safety Report 9318144 (Version 1)
Quarter: 2013Q2

REPORT INFORMATION
  Report Type: Spontaneous
  Country: US (occurrence: US)
  Receive Date: 20130530
  Receipt Date: 20130530
  Transmission Date: 20140414
  Serious: No
  Sender: FDA-Public Use
  Company Number: US-GLAXOSMITHKLINE-A1006474A

PATIENT
  Age: 58 Year
  Sex: Male

DRUGS (3)
  1. VENTOLIN [Suspect]
     Indication: ASTHMA
     Route: 055
     Dates: start: 201211
  2. VICODIN [Concomitant]
  3. VALIUM [Concomitant]

REACTIONS (3)
  - Therapeutic response decreased [Recovering/Resolving]
  - Dyspnoea [Unknown]
  - Upper respiratory tract infection [Unknown]
